FAERS Safety Report 6591063-6 (Version None)
Quarter: 2010Q1

REPORT INFORMATION
  Report Type: 
  Country: None (occurrence: None)
  Receive Date: 20100219
  Receipt Date: 20100128
  Transmission Date: 20100710
  Serious: Yes (Hospitalization, Other)
  Sender: FDA-Public Use
  Company Number: DE-BAYER-200941147GPV

PATIENT
  Age: 75 Year
  Sex: Male
  Weight: 73 kg

DRUGS (18)
  1. AVELOX [Suspect]
     Indication: PNEUMONIA
     Dosage: TOTAL DAILY DOSE: 400 MG  UNIT DOSE: 400 MG
     Route: 048
     Dates: start: 20091128, end: 20091130
  2. CEFTRIAXONE [Suspect]
     Indication: PNEUMONIA
     Dates: start: 20091127, end: 20091127
  3. AMIODARON 200 [Concomitant]
  4. BELOC-ZOK 95 [Concomitant]
     Dosage: TOTAL DAILY DOSE: 95 MG  UNIT DOSE: 95 MG
  5. ASPIRIN [Concomitant]
  6. DELIX PLUS 5 [Concomitant]
  7. DIGIMERCK 0.1 [Concomitant]
  8. ALLO 100 [Concomitant]
  9. PRAVASTATIN 40 [Concomitant]
  10. JODID 200 [Concomitant]
  11. FUROSEMID 40 [Concomitant]
     Dosage: TOTAL DAILY DOSE: 40 MG  UNIT DOSE: 40 MG
  12. AMARYL [Concomitant]
  13. PANTOZOL 20 [Concomitant]
  14. PREDNISOLON [Concomitant]
     Dates: start: 20091127
  15. BRICANYL [Concomitant]
     Dates: start: 20091127
  16. CALCIPARIN 7500 [Concomitant]
     Dates: start: 20091127
  17. MARCUMAR [Concomitant]
     Dates: start: 20091127
  18. ACTRAPID [Concomitant]
     Dates: start: 20091127

REACTIONS (6)
  - ABDOMINAL PAIN [None]
  - DERMATITIS ALLERGIC [None]
  - LIPASE INCREASED [None]
  - OCULAR HYPERAEMIA [None]
  - PANCREATITIS [None]
  - PRURITUS [None]
